FAERS Safety Report 8462577-9 (Version None)
Quarter: 2012Q2

REPORT INFORMATION
  Report Type: 
  Country: None (occurrence: None)
  Receive Date: 20120625
  Receipt Date: 20120305
  Transmission Date: 20120825
  Serious: No
  Sender: FDA-Public Use
  Company Number: US-BAUSCH-2012BL001603

PATIENT
  Age: 69 Year
  Sex: Male

DRUGS (2)
  1. LOTEMAX [Concomitant]
  2. BESIVANCE [Suspect]
     Indication: THERAPEUTIC PROCEDURE
     Route: 047
     Dates: start: 20120120

REACTIONS (1)
  - EYE IRRITATION [None]
